FAERS Safety Report 21376275 (Version 1)
Quarter: 2022Q3

REPORT INFORMATION
  Report Type: Spontaneous
  Country: US (occurrence: None)
  Receive Date: 20220923
  Receipt Date: 20220923
  Transmission Date: 20221026
  Serious: Yes (Other)
  Sender: FDA-Public Use
  Company Number: None

PATIENT
  Age: 57 Year
  Sex: Female
  Weight: 63 kg

DRUGS (1)
  1. VYEPTI [Suspect]
     Active Substance: EPTINEZUMAB-JJMR
     Indication: Migraine
     Dosage: OTHER FREQUENCY : Q 3 MONTHS;?
     Route: 042
     Dates: start: 20220923, end: 20220923

REACTIONS (4)
  - Infusion related reaction [None]
  - Nausea [None]
  - Vomiting [None]
  - Pruritus [None]

NARRATIVE: CASE EVENT DATE: 20220923
